FAERS Safety Report 6298010-5 (Version None)
Quarter: 2009Q3

REPORT INFORMATION
  Report Type: 
  Country: None (occurrence: None)
  Receive Date: 20090805
  Receipt Date: 20090728
  Transmission Date: 20100115
  Serious: Yes (Hospitalization)
  Sender: FDA-Public Use
  Company Number: US-JNJFOC-20061006165

PATIENT
  Sex: Male

DRUGS (1)
  1. RISPERDAL [Suspect]
     Indication: MAJOR DEPRESSION
     Route: 048

REACTIONS (2)
  - AKATHISIA [None]
  - TYPE 2 DIABETES MELLITUS [None]
